FAERS Safety Report 7834630-1 (Version None)
Quarter: 2011Q4

REPORT INFORMATION
  Report Type: 
  Country: None (occurrence: None)
  Receive Date: 20111024
  Receipt Date: 20110329
  Transmission Date: 20120403
  Serious: No
  Sender: FDA-Public Use
  Company Number: US-BAUSCH-2011BL002091

PATIENT
  Age: 30 Year
  Sex: Female

DRUGS (1)
  1. NEOMYCIN AND POLYMYXIN B SULFATES AND HYDROCORT OTIC SUS USP [Suspect]
     Indication: EAR INFECTION
     Route: 001
     Dates: start: 20110324, end: 20110326

REACTIONS (1)
  - DRUG HYPERSENSITIVITY [None]
